FAERS Safety Report 7446105-2 (Version None)
Quarter: 2011Q2

REPORT INFORMATION
  Report Type: 
  Country: None (occurrence: None)
  Receive Date: 20110429
  Receipt Date: 20110426
  Transmission Date: 20111010
  Serious: Yes (Other)
  Sender: FDA-Public Use
  Company Number: A0886520A

PATIENT
  Sex: Female

DRUGS (9)
  1. PRILOSEC [Concomitant]
  2. METOPROLOL [Concomitant]
  3. TRICOR [Concomitant]
  4. AVANDIA [Suspect]
     Dosage: 8MG UNKNOWN
     Route: 048
     Dates: end: 20070101
  5. DIOVAN [Concomitant]
  6. AMARYL [Concomitant]
  7. EFFEXOR [Concomitant]
  8. NEURONTIN [Concomitant]
  9. WELLBUTRIN [Concomitant]

REACTIONS (4)
  - CORONARY ARTERY DISEASE [None]
  - CEREBROVASCULAR ACCIDENT [None]
  - MYOCARDIAL INFARCTION [None]
  - CARDIAC DISORDER [None]
